FAERS Safety Report 24790953 (Version 2)
Quarter: 2025Q1

REPORT INFORMATION
  Report Type: Spontaneous
  Country: CA (occurrence: CA)
  Receive Date: 20241230
  Receipt Date: 20250106
  Transmission Date: 20250409
  Serious: Yes (Disabling, Other)
  Sender: BIOMARIN
  Company Number: CA-SA-2024SA331670

PATIENT

DRUGS (7)
  1. LARONIDASE [Suspect]
     Active Substance: LARONIDASE
     Indication: Mucopolysaccharidosis I
     Dosage: 23.2 MG, QW
     Route: 042
     Dates: start: 20241210, end: 20241210
  2. LORATADINE [Concomitant]
     Active Substance: LORATADINE
     Indication: Premedication
  3. LORATADINE [Concomitant]
     Active Substance: LORATADINE
  4. TYLENOL [Concomitant]
     Active Substance: ACETAMINOPHEN
     Indication: Premedication
  5. DICLOFENAC [Concomitant]
     Active Substance: DICLOFENAC
     Indication: Arthralgia
  6. SYMBICORT [Concomitant]
     Active Substance: BUDESONIDE\FORMOTEROL FUMARATE DIHYDRATE
     Indication: Product used for unknown indication
  7. SUPRAX [Concomitant]
     Active Substance: CEFIXIME
     Indication: Product used for unknown indication

REACTIONS (12)
  - Fall [Unknown]
  - Renal impairment [Unknown]
  - Nephrotic syndrome [Not Recovered/Not Resolved]
  - Epistaxis [Recovered/Resolved]
  - Nervousness [Recovered/Resolved]
  - Peripheral swelling [Not Recovered/Not Resolved]
  - Oedema peripheral [Not Recovered/Not Resolved]
  - Erythema [Unknown]
  - Joint swelling [Not Recovered/Not Resolved]
  - Onychomycosis [Unknown]
  - Eye swelling [Unknown]
  - Pruritus [Unknown]

NARRATIVE: CASE EVENT DATE: 20180101
